FAERS Safety Report 17150320 (Version 3)
Quarter: 2019Q4

REPORT INFORMATION
  Report Type: Spontaneous
  Country: JP (occurrence: JP)
  Receive Date: 20191213
  Receipt Date: 20191226
  Transmission Date: 20200122
  Serious: Yes (Death)
  Sender: FDA-Public Use
  Company Number: JP-ELI_LILLY_AND_COMPANY-JP201912006561

PATIENT
  Age: 85 Year
  Sex: Female

DRUGS (17)
  1. ATORVASTATIN [Concomitant]
     Active Substance: ATORVASTATIN
  2. LYRICA [Concomitant]
     Active Substance: PREGABALIN
  3. DAIPHEN [Concomitant]
     Active Substance: SULFAMETHOXAZOLE\TRIMETHOPRIM
  4. PREDONINE [Concomitant]
     Active Substance: PREDNISOLONE
  5. ENSURE H [Concomitant]
     Active Substance: CARBOHYDRATES\FATTY ACIDS\MINERALS\PROTEIN\VITAMINS
  6. SPIRAZON [Concomitant]
  7. PICOSULFATE NA [Concomitant]
     Active Substance: SODIUM PICOSULFATE
  8. OLUMIANT [Suspect]
     Active Substance: BARICITINIB
     Indication: PRODUCT USED FOR UNKNOWN INDICATION
     Dosage: UNK
     Route: 048
     Dates: start: 20181203
  9. RABEPRAZOLE NA [Concomitant]
     Active Substance: RABEPRAZOLE SODIUM
  10. CLARITHROMYCIN. [Concomitant]
     Active Substance: CLARITHROMYCIN
  11. TRAMAL [Concomitant]
     Active Substance: TRAMADOL
  12. MAGNESIUM OXIDE. [Concomitant]
     Active Substance: MAGNESIUM OXIDE
  13. MS CONTIN [Concomitant]
     Active Substance: MORPHINE SULFATE
  14. DIHYDROCODEINE PHOSPHATE [Concomitant]
     Active Substance: DIHYDROCODEINE PHOSPHATE
  15. JANUVIA [Concomitant]
     Active Substance: SITAGLIPTIN PHOSPHATE
  16. GLIMEPIRIDE. [Concomitant]
     Active Substance: GLIMEPIRIDE
  17. ACTONEL [Concomitant]
     Active Substance: RISEDRONATE SODIUM

REACTIONS (1)
  - Interstitial lung disease [Fatal]
